FAERS Safety Report 18941681 (Version 1)
Quarter: 2021Q1

REPORT INFORMATION
  Report Type: Spontaneous
  Country: KR (occurrence: KR)
  Receive Date: 20210225
  Receipt Date: 20210225
  Transmission Date: 20210420
  Serious: Yes (Other)
  Sender: FDA-Public Use
  Company Number: KR-ALLERGAN-2107309US

PATIENT
  Sex: Female

DRUGS (1)
  1. BOTOX [Suspect]
     Active Substance: ONABOTULINUMTOXINA
     Indication: FACIAL ASYMMETRY
     Dosage: 20 UNITS, SINGLE
     Route: 030
     Dates: start: 20180519, end: 20180519

REACTIONS (3)
  - Rash [Recovered/Resolved]
  - Off label use [Unknown]
  - Tongue movement disturbance [Recovered/Resolved]

NARRATIVE: CASE EVENT DATE: 20180519
